FAERS Safety Report 9082889 (Version 1)
Quarter: 2013Q1

REPORT INFORMATION
  Report Type: Report from Study
  Country: US (occurrence: US)
  Receive Date: 20130131
  Receipt Date: 20130131
  Transmission Date: 20140127
  Serious: No
  Sender: FDA-Public Use
  Company Number: US-ABBOTT-12P-163-0990038-00

PATIENT
  Age: 45 Year
  Sex: Male

DRUGS (14)
  1. HUMIRA [Suspect]
     Indication: CROHN^S DISEASE
     Dosage: 160MG ON 25 SEP 2012
     Dates: start: 20120925
  2. ASACOL [Concomitant]
     Indication: CROHN^S DISEASE
  3. LORATADINE [Concomitant]
     Indication: HYPERSENSITIVITY
     Dosage: 10MG DAILY
  4. LISINOPRIL [Concomitant]
     Indication: HYPERTENSION
     Dosage: 20MG DAILY
  5. XANAX [Concomitant]
     Indication: ANXIETY
  6. EQUATE ACID REDUCER [Concomitant]
     Indication: GASTROOESOPHAGEAL REFLUX DISEASE
     Dosage: 150MG DAILY
  7. HYDROCODONE [Concomitant]
     Indication: PAIN
     Dosage: 10/325MG 1 TAB EVERY 8 HOURS AS NEEDED
  8. DULERA [Concomitant]
     Indication: ASTHMA
  9. DULERA [Concomitant]
     Indication: CHRONIC OBSTRUCTIVE PULMONARY DISEASE
  10. PREDNISONE [Concomitant]
     Indication: CROHN^S DISEASE
     Dosage: 30MG DAILY
  11. XANAX XR [Concomitant]
     Indication: SLEEP DISORDER
     Dosage: AT BEDTIME
  12. VITAMIN D [Concomitant]
     Indication: PRODUCT USED FOR UNKNOWN INDICATION
  13. IRON [Concomitant]
     Indication: PRODUCT USED FOR UNKNOWN INDICATION
  14. MULTI-VITAMINS VITAFIT [Concomitant]
     Indication: VITAMIN SUPPLEMENTATION

REACTIONS (1)
  - Joint swelling [Recovering/Resolving]
